FAERS Safety Report 5179192-5 (Version None)
Quarter: 2006Q4

REPORT INFORMATION
  Report Type: 
  Country: None (occurrence: None)
  Receive Date: 20061211
  Receipt Date: 20061205
  Transmission Date: 20070319
  Serious: Yes (Hospitalization)
  Sender: FDA-Public Use
  Company Number: SP01046

PATIENT
  Age: 85 Year
  Sex: Male
  Weight: 81.6475 kg

DRUGS (3)
  1. XIFAXAN [Suspect]
     Indication: DIARRHOEA INFECTIOUS
     Dosage: ORAL
     Route: 048
     Dates: start: 20061101, end: 20061202
  2. VANCOMYCIN [Concomitant]
  3. METRONIDAZOLE [Concomitant]

REACTIONS (1)
  - THROMBOCYTOPENIA [None]
